FAERS Safety Report 23727077 (Version 2)
Quarter: 2024Q2

REPORT INFORMATION
  Report Type: Spontaneous
  Country: FR (occurrence: FR)
  Receive Date: 20240410
  Receipt Date: 20240415
  Transmission Date: 20240716
  Serious: Yes (Other)
  Sender: FDA-Public Use
  Company Number: FR-002147023-NVSC2024FR075364

PATIENT
  Age: 84 Year

DRUGS (2)
  1. BEOVU [Suspect]
     Active Substance: BROLUCIZUMAB-DBLL
     Indication: Product used for unknown indication
     Dosage: UNK (6MG/0.05 ML)
     Route: 065
     Dates: start: 20240404
  2. LUCENTIS [Concomitant]
     Active Substance: RANIBIZUMAB
     Indication: Product used for unknown indication
     Dosage: UNK (20 IVT INJECTIONS)
     Route: 065

REACTIONS (4)
  - Vasculitis [Unknown]
  - Retinal vascular occlusion [Unknown]
  - Retinal artery occlusion [Unknown]
  - Visual acuity reduced [Unknown]

NARRATIVE: CASE EVENT DATE: 20240404
